FAERS Safety Report 20146664 (Version 1)
Quarter: 2021Q4

REPORT INFORMATION
  Report Type: Spontaneous
  Country: US (occurrence: None)
  Receive Date: 20211203
  Receipt Date: 20211203
  Transmission Date: 20220304
  Serious: No
  Sender: FDA-Public Use
  Company Number: None

PATIENT
  Age: 67 Year
  Sex: Female
  Weight: 135 kg

DRUGS (15)
  1. LEVOFLOXACIN [Suspect]
     Active Substance: LEVOFLOXACIN
     Indication: Cellulitis
     Route: 048
     Dates: start: 20211025, end: 20211119
  2. LEFLUNOMIDE [Concomitant]
     Active Substance: LEFLUNOMIDE
  3. TIZANIDINE [Concomitant]
     Active Substance: TIZANIDINE
  4. CITALOPRAM [Concomitant]
     Active Substance: CITALOPRAM HYDROBROMIDE
  5. LOSARTAN POTASSIUM [Concomitant]
     Active Substance: LOSARTAN POTASSIUM
  6. triamterene hctx [Concomitant]
  7. Carevedilol [Concomitant]
  8. OMEPRAZOLE [Concomitant]
     Active Substance: OMEPRAZOLE
  9. BREO ELLIPTA [Concomitant]
     Active Substance: FLUTICASONE FUROATE\VILANTEROL TRIFENATATE
  10. TYLENOL EXTRA STRENGTH [Concomitant]
     Active Substance: ACETAMINOPHEN
  11. multi vitamins for senior women [Concomitant]
  12. VITAMIN D3 [Concomitant]
     Active Substance: CHOLECALCIFEROL
  13. VITAMIN C [Concomitant]
     Active Substance: ASCORBIC ACID
  14. CALCIUM CITRATE [Concomitant]
     Active Substance: CALCIUM CITRATE
  15. Ovuvite eye vitamins + minerals [Concomitant]

REACTIONS (14)
  - Arthralgia [None]
  - Joint noise [None]
  - Joint range of motion decreased [None]
  - Tendonitis [None]
  - Musculoskeletal disorder [None]
  - Osteoarthritis [None]
  - Exostosis [None]
  - Synovial cyst [None]
  - Rotator cuff syndrome [None]
  - Rotator cuff syndrome [None]
  - Tendon rupture [None]
  - Muscle atrophy [None]
  - Joint effusion [None]
  - Bursa disorder [None]

NARRATIVE: CASE EVENT DATE: 20211101
